FAERS Safety Report 4277531-0 (Version None)
Quarter: 2004Q1

REPORT INFORMATION
  Report Type: 
  Country: None (occurrence: None)
  Receive Date: 20040121
  Receipt Date: 20031126
  Transmission Date: 20041129
  Serious: No
  Sender: FDA-Public Use
  Company Number: 6888

PATIENT
  Age: 63 Year
  Sex: Female

DRUGS (9)
  1. METHOTREXATE [Suspect]
     Indication: ARTHRITIS
     Dosage: 0K.9 MG WEEKLY IM
     Route: 030
     Dates: start: 20020930, end: 20031001
  2. METHOTREXATE [Suspect]
     Indication: SYSTEMIC LUPUS ERYTHEMATOSUS
     Dosage: 0K.9 MG WEEKLY IM
     Route: 030
     Dates: start: 20020930, end: 20031001
  3. DIOVAN [Concomitant]
  4. FUROSEMIDE [Concomitant]
  5. POTASSIUM CHLORIDE [Concomitant]
  6. DETROL [Concomitant]
  7. AMITRIPTYLINE [Concomitant]
  8. CELLCEPT [Concomitant]
  9. INSULIN [Concomitant]

REACTIONS (6)
  - DRUG TOXICITY [None]
  - GASTRIC VARICES [None]
  - HEPATIC CIRRHOSIS [None]
  - PORTAL HYPERTENSION [None]
  - SYSTEMIC LUPUS ERYTHEMATOSUS [None]
  - VARICES OESOPHAGEAL [None]
